FAERS Safety Report 6662392-2 (Version None)
Quarter: 2010Q1

REPORT INFORMATION
  Report Type: 
  Country: None (occurrence: None)
  Receive Date: 20100331
  Receipt Date: 20100318
  Transmission Date: 20100710
  Serious: Yes (Hospitalization, Other)
  Sender: FDA-Public Use
  Company Number: US-ELI_LILLY_AND_COMPANY-US201003006925

PATIENT
  Age: 48 Year
  Sex: Male

DRUGS (3)
  1. CYMBALTA [Suspect]
     Indication: NEUROPATHY PERIPHERAL
     Dosage: 60 MG, UNK
     Dates: start: 20091001, end: 20100301
  2. CYMBALTA [Suspect]
     Dosage: 60 MG, QOD
  3. CYMBALTA [Suspect]
     Dosage: 60 MG, OTHER

REACTIONS (9)
  - BLADDER CANCER [None]
  - CONSTIPATION [None]
  - DIVERTICULITIS [None]
  - DRUG WITHDRAWAL SYNDROME [None]
  - HOT FLUSH [None]
  - HYPERHIDROSIS [None]
  - INSOMNIA [None]
  - OFF LABEL USE [None]
  - TINNITUS [None]
